FAERS Safety Report 5830318-7 (Version None)
Quarter: 2008Q3

REPORT INFORMATION
  Report Type: 
  Country: None (occurrence: None)
  Receive Date: 20080801
  Receipt Date: 20080721
  Transmission Date: 20090109
  Serious: Yes (Other)
  Sender: FDA-Public Use
  Company Number: DE-ROCHE-569011

PATIENT
  Sex: Female

DRUGS (5)
  1. BONIVA [Suspect]
     Route: 042
     Dates: start: 20071203
  2. CALCIUM/VITAMIN D3 [Suspect]
     Indication: DRUG USE FOR UNKNOWN INDICATION
     Dosage: DRUG REPORTED: CALCIUM D3.
     Route: 048
  3. OMEPRAZOLE [Concomitant]
     Route: 048
  4. PALLADON [Concomitant]
     Route: 048
  5. 1 CONCOMITANT DRUG [Concomitant]
     Dosage: DRUG REPORTED: METEX
     Route: 048

REACTIONS (2)
  - MYOSITIS OSSIFICANS [None]
  - OSTEOSCLEROSIS [None]
